FAERS Safety Report 22289730 (Version 1)
Quarter: 2023Q2

REPORT INFORMATION
  Report Type: Spontaneous
  Country: US (occurrence: None)
  Receive Date: 20230504
  Receipt Date: 20230504
  Transmission Date: 20230721
  Serious: No
  Sender: FDA-Public Use
  Company Number: None

PATIENT
  Age: 50 Year
  Sex: Female
  Weight: 85.05 kg

DRUGS (1)
  1. QULIPTA [Suspect]
     Active Substance: ATOGEPANT
     Indication: Headache
     Dates: start: 20230427, end: 20230430

REACTIONS (4)
  - Glossodynia [None]
  - Tongue erythema [None]
  - Tongue blistering [None]
  - Hypersensitivity [None]

NARRATIVE: CASE EVENT DATE: 20230427
